FAERS Safety Report 7869339-1 (Version None)
Quarter: 2011Q4

REPORT INFORMATION
  Report Type: 
  Country: None (occurrence: None)
  Receive Date: 20111028
  Receipt Date: 20110102
  Transmission Date: 20120403
  Serious: Yes (Other)
  Sender: FDA-Public Use
  Company Number: US-AMGEN-USASP2010012884

PATIENT
  Age: 5 Month
  Sex: Female
  Weight: 3.52 kg

DRUGS (6)
  1. ENBREL [Suspect]
     Dates: start: 20060301, end: 20100801
  2. ENBREL [Suspect]
     Dosage: 50 MG, Q2WK
     Route: 063
  3. LOVAZA [Concomitant]
     Dosage: UNK UNK, UNK
     Route: 063
  4. PREDNISONE [Concomitant]
     Dosage: UNK UNK, QD
     Route: 063
  5. CALCIUM [Concomitant]
     Dosage: UNK UNK, UNK
     Route: 063
  6. IRON [Concomitant]
     Dosage: UNK UNK, UNK
     Route: 063

REACTIONS (1)
  - HEPATIC ENZYME INCREASED [None]
